FAERS Safety Report 19882947 (Version 1)
Quarter: 2021Q3

REPORT INFORMATION
  Report Type: Spontaneous
  Country: US (occurrence: US)
  Receive Date: 20210925
  Receipt Date: 20210925
  Transmission Date: 20211014
  Serious: No
  Sender: FDA-Public Use
  Company Number: US-SA-2021SA312651

PATIENT
  Age: 48 Year
  Sex: Male
  Weight: 62.5 kg

DRUGS (1)
  1. DUPIXENT [Suspect]
     Active Substance: DUPILUMAB
     Indication: DERMATITIS ATOPIC
     Dosage: 300 MG, QOW
     Route: 058
     Dates: start: 20210702

REACTIONS (3)
  - Swelling face [Unknown]
  - Burning sensation [Unknown]
  - Rash [Unknown]

NARRATIVE: CASE EVENT DATE: 202109
